FAERS Safety Report 24283117 (Version 1)
Quarter: 2024Q3

REPORT INFORMATION
  Report Type: Spontaneous
  Country: US (occurrence: US)
  Receive Date: 20240904
  Receipt Date: 20240904
  Transmission Date: 20241017
  Serious: No
  Sender: SAPTALIS PHARMACEUTICALS
  Company Number: US-Saptalis Pharmaceuticals LLC-2161199

PATIENT
  Sex: Female

DRUGS (1)
  1. CLOBETASOL PROPIONATE [Suspect]
     Active Substance: CLOBETASOL PROPIONATE
     Indication: Psoriasis

REACTIONS (1)
  - Treatment noncompliance [Unknown]
